FAERS Safety Report 10179301 (Version 1)
Quarter: 2014Q2

REPORT INFORMATION
  Report Type: Spontaneous
  Country: US (occurrence: None)
  Receive Date: 20140425
  Receipt Date: 20140425
  Transmission Date: 20141212
  Serious: No
  Sender: FDA-Public Use
  Company Number: AP356-00367-SPO-US

PATIENT
  Sex: 0

DRUGS (2)
  1. BELVIQ (LORCASERIN HYDROCHLORIDE) [Suspect]
  2. DIABETIC MEDICATION [Concomitant]

REACTIONS (1)
  - Liver function test abnormal [None]
